FAERS Safety Report 17871399 (Version 8)
Quarter: 2024Q4

REPORT INFORMATION
  Report Type: Report from Study
  Country: US (occurrence: US)
  Receive Date: 20200608
  Receipt Date: 20241203
  Transmission Date: 20250114
  Serious: Yes (Other)
  Sender: TAKEDA
  Company Number: US-SHIRE-US202018084

PATIENT
  Age: 9 Year
  Sex: Male

DRUGS (5)
  1. ADVATE [Suspect]
     Active Substance: ANTIHEMOPHILIC FACTOR, HUMAN RECOMBINANT
     Indication: Haemorrhage
     Dosage: 1136 INTERNATIONAL UNIT
  2. ADVATE [Suspect]
     Active Substance: ANTIHEMOPHILIC FACTOR, HUMAN RECOMBINANT
     Dosage: 1664 INTERNATIONAL UNIT
  3. ADVATE [Suspect]
     Active Substance: ANTIHEMOPHILIC FACTOR, HUMAN RECOMBINANT
     Dosage: 1706 INTERNATIONAL UNIT
  4. ADVATE [Suspect]
     Active Substance: ANTIHEMOPHILIC FACTOR, HUMAN RECOMBINANT
     Dosage: 2005 INTERNATIONAL UNIT
  5. ADVATE [Suspect]
     Active Substance: ANTIHEMOPHILIC FACTOR, HUMAN RECOMBINANT
     Dosage: 2030 INTERNATIONAL UNIT

REACTIONS (6)
  - Haemarthrosis [Recovered/Resolved]
  - Muscle haemorrhage [Unknown]
  - Road traffic accident [Unknown]
  - Joint injury [Unknown]
  - Head injury [Unknown]
  - Joint swelling [Unknown]

NARRATIVE: CASE EVENT DATE: 20200201
